FAERS Safety Report 4916605-5 (Version None)
Quarter: 2006Q1

REPORT INFORMATION
  Report Type: 
  Country: None (occurrence: None)
  Receive Date: 20060220
  Receipt Date: 20060207
  Transmission Date: 20060701
  Serious: Yes (Disabling)
  Sender: FDA-Public Use
  Company Number: FR-GLAXOSMITHKLINE-B0409631A

PATIENT
  Age: 77 Year
  Sex: Female
  Weight: 87 kg

DRUGS (1)
  1. DEROXAT [Suspect]
     Dosage: 20MG PER DAY
     Route: 048
     Dates: start: 20031015, end: 20051015

REACTIONS (4)
  - HYPERTONIA [None]
  - HYPOKINESIA [None]
  - PARKINSONISM [None]
  - TREMOR [None]
